FAERS Safety Report 6522890-9 (Version None)
Quarter: 2009Q4

REPORT INFORMATION
  Report Type: 
  Country: None (occurrence: None)
  Receive Date: 20091222
  Receipt Date: 20091211
  Transmission Date: 20100525
  Serious: Yes (Other)
  Sender: FDA-Public Use
  Company Number: 1000010874

PATIENT
  Age: 20 Year
  Sex: Female

DRUGS (2)
  1. ECITALOPRAM        (ECITALOPRAM OXALATE) [Suspect]
     Dosage: 15 MG (15 MG, 1 IN 1 D), ORAL, ORAL
     Route: 048
  2. SEROPRAM [Concomitant]

REACTIONS (3)
  - PRURITUS [None]
  - RASH [None]
  - SCAR [None]
